FAERS Safety Report 9119043 (Version 1)
Quarter: 2013Q1

REPORT INFORMATION
  Report Type: Spontaneous
  Country: US (occurrence: None)
  Receive Date: 20130221
  Receipt Date: 20130221
  Transmission Date: 20140127
  Serious: Yes (Other)
  Sender: FDA-Public Use
  Company Number: None

PATIENT
  Age: 49 Year
  Sex: Female
  Weight: 55.79 kg

DRUGS (2)
  1. FENTANYL TRANSDERMAL SYSTEM 50MCG/H---5 MG FENTANYL [Suspect]
     Indication: ARACHNOIDITIS
     Dosage: 1 PATCH 50MCG/H 5 MG FENTANYL EVERY 72 HOURS, TRANSDERMAL
     Route: 062
     Dates: start: 20130208, end: 20130220
  2. FENTANYL TRANSDERMAL 50MCG/H----5.10MG FENTANYL [Suspect]
     Indication: UNEVALUABLE EVENT
     Dosage: 1 PATCH 50MCG/H 5.10MG FENTANYL EVERY 72 HOURS TRANSDERMAL
     Route: 062
     Dates: start: 20100501, end: 20100601

REACTIONS (18)
  - Product substitution issue [None]
  - Drug ineffective [None]
  - Suicidal ideation [None]
  - Pain [None]
  - Bedridden [None]
  - Crying [None]
  - Migraine [None]
  - Hyperhidrosis [None]
  - Tremor [None]
  - Dizziness [None]
  - Nausea [None]
  - Insomnia [None]
  - Vomiting [None]
  - Diarrhoea [None]
  - Pyrexia [None]
  - Chills [None]
  - Depression [None]
  - Anxiety [None]
